FAERS Safety Report 6165548-0 (Version None)
Quarter: 2009Q2

REPORT INFORMATION
  Report Type: 
  Country: None (occurrence: None)
  Receive Date: 20090423
  Receipt Date: 20090414
  Transmission Date: 20091009
  Serious: Yes (Hospitalization)
  Sender: FDA-Public Use
  Company Number: PHHO2009IT04981

PATIENT
  Sex: Female
  Weight: 65 kg

DRUGS (1)
  1. STI571/CGP57148B T35717+CAPS [Suspect]
     Dosage: 400 MG, QD
     Route: 048
     Dates: start: 20081106, end: 20090121

REACTIONS (3)
  - DYSPNOEA [None]
  - LUNG DISORDER [None]
  - RED BLOOD CELL SEDIMENTATION RATE INCREASED [None]
